FAERS Safety Report 18947711 (Version 4)
Quarter: 2022Q2

REPORT INFORMATION
  Report Type: Report from Study
  Country: CA (occurrence: CA)
  Receive Date: 20210226
  Receipt Date: 20220602
  Transmission Date: 20220721
  Serious: Yes (Other)
  Sender: FDA-Public Use
  Company Number: CA-SHIRE-CA202026467

PATIENT
  Age: 77 Year
  Sex: Female

DRUGS (4)
  1. HUMAN IMMUNOGLOBULIN G [Suspect]
     Active Substance: HUMAN IMMUNOGLOBULIN G
     Indication: Primary immunodeficiency syndrome
     Dosage: 4 GRAM
     Route: 065
  2. HUMAN IMMUNOGLOBULIN G [Suspect]
     Active Substance: HUMAN IMMUNOGLOBULIN G
     Dosage: 5 GRAM, 1/WEEK
     Route: 065
     Dates: start: 20191128, end: 202204
  3. BENZYDAMINE [Concomitant]
     Active Substance: BENZYDAMINE
     Indication: Oral pain
     Dosage: UNK
     Route: 065
  4. BENZYDAMINE [Concomitant]
     Active Substance: BENZYDAMINE
     Indication: Dry mouth

REACTIONS (10)
  - Lower respiratory tract infection [Unknown]
  - Blood immunoglobulin G decreased [Not Recovered/Not Resolved]
  - Oral pain [Unknown]
  - Dry mouth [Not Recovered/Not Resolved]
  - Secretion discharge [Recovered/Resolved]
  - Pulmonary mass [Not Recovered/Not Resolved]
  - Malaise [Unknown]
  - Pulmonary pain [Not Recovered/Not Resolved]
  - Chest discomfort [Not Recovered/Not Resolved]
  - Condition aggravated [Not Recovered/Not Resolved]
